FAERS Safety Report 13108434 (Version 1)
Quarter: 2017Q1

REPORT INFORMATION
  Report Type: Spontaneous
  Country: FR (occurrence: FR)
  Receive Date: 20170112
  Receipt Date: 20170112
  Transmission Date: 20170428
  Serious: Yes (Life-Threatening, Hospitalization, Other)
  Sender: FDA-Public Use
  Company Number: FR-BRISTOL-MYERS SQUIBB COMPANY-BMS-2017-000314

PATIENT
  Age: 87 Year
  Sex: Female

DRUGS (2)
  1. LOVENOX [Suspect]
     Active Substance: ENOXAPARIN SODIUM
     Indication: DEEP VEIN THROMBOSIS
     Dosage: UNK
     Route: 058
     Dates: start: 201611
  2. COUMADINE [Suspect]
     Active Substance: WARFARIN SODIUM
     Indication: DEEP VEIN THROMBOSIS
     Dosage: UNK
     Route: 048
     Dates: start: 20161109

REACTIONS (5)
  - Acute kidney injury [Not Recovered/Not Resolved]
  - Retroperitoneal haematoma [Recovering/Resolving]
  - Hypovolaemic shock [Recovered/Resolved]
  - Anaemia [Recovered/Resolved]
  - Transfusion [Unknown]

NARRATIVE: CASE EVENT DATE: 20161113
